FAERS Safety Report 15794531 (Version 1)
Quarter: 2018Q4

REPORT INFORMATION
  Report Type: Spontaneous
  Country: US (occurrence: US)
  Receive Date: 20181213
  Receipt Date: 20181213
  Transmission Date: 20190205
  Serious: No
  Sender: FDA-Public Use
  Company Number: None

PATIENT
  Age: 30 Year

DRUGS (5)
  1. DOCUSATE [Concomitant]
     Active Substance: DOCUSATE
  2. EXJADE [Suspect]
     Active Substance: DEFERASIROX
     Indication: BLOOD DISORDER
     Route: 048
     Dates: start: 20171113
  3. GLUCOPHAGE [Concomitant]
     Active Substance: METFORMIN HYDROCHLORIDE
  4. LISINOPRIL. [Concomitant]
     Active Substance: LISINOPRIL
  5. JANUVIA [Concomitant]
     Active Substance: SITAGLIPTIN PHOSPHATE

REACTIONS (1)
  - Death [None]

NARRATIVE: CASE EVENT DATE: 20181203
